FAERS Safety Report 10368089 (Version 1)
Quarter: 2014Q1

REPORT INFORMATION
  Report Type: Spontaneous
  Country: US (occurrence: None)
  Receive Date: 20140306
  Receipt Date: 20140306
  Transmission Date: 20141002
  Serious: Yes (Other)
  Sender: FDA-Public Use
  Company Number: 163-21880-13023444

PATIENT
  Age: 61 Year
  Sex: Male
  Weight: 101.15 kg

DRUGS (3)
  1. REVLIMID (LENALIDOMIDE) (CAPSULES) [Suspect]
     Indication: PLASMA CELL MYELOMA
     Dosage: 25 MG, 14 IN 21 D, PO
     Route: 048
     Dates: start: 20130202
  2. OXYCONTIN (OXYCODONE HYDROCHLORIDE) [Concomitant]
  3. NORCO (VICODIN) [Concomitant]

REACTIONS (4)
  - Arrhythmia [None]
  - Palpitations [None]
  - Abdominal discomfort [None]
  - Pain [None]
